FAERS Safety Report 8163414-2 (Version None)
Quarter: 2012Q1

REPORT INFORMATION
  Report Type: 
  Country: None (occurrence: None)
  Receive Date: 20120224
  Receipt Date: 20120210
  Transmission Date: 20120608
  Serious: Yes (Hospitalization, Other)
  Sender: FDA-Public Use
  Company Number: FR-AMGEN-FRASP2011016610

PATIENT
  Age: 53 Year
  Sex: Female

DRUGS (1)
  1. ENBREL [Suspect]
     Indication: ANKYLOSING SPONDYLITIS
     Dosage: 50 MG ONCE OR TWICE A WEEK
     Dates: start: 20110113, end: 20110301

REACTIONS (13)
  - PARATHYROID TUMOUR BENIGN [None]
  - WEIGHT DECREASED [None]
  - FATIGUE [None]
  - RENAL FAILURE [None]
  - NAUSEA [None]
  - INJECTION SITE PRURITUS [None]
  - INJECTION SITE ERYTHEMA [None]
  - INJECTION SITE SWELLING [None]
  - PAIN [None]
  - HEART RATE INCREASED [None]
  - MALAISE [None]
  - HYPERPARATHYROIDISM [None]
  - INJECTION SITE PAIN [None]
